FAERS Safety Report 11083681 (Version 1)
Quarter: 2015Q2

REPORT INFORMATION
  Report Type: Spontaneous
  Country: CH (occurrence: CH)
  Receive Date: 20150501
  Receipt Date: 20150501
  Transmission Date: 20150821
  Serious: Yes (Hospitalization)
  Sender: FDA-Public Use
  Company Number: CH-JNJFOC-20150422556

PATIENT
  Age: 72 Year
  Sex: Male

DRUGS (10)
  1. PANTOZOL [Concomitant]
     Active Substance: PANTOPRAZOLE SODIUM
     Route: 065
  2. SEROQUEL [Concomitant]
     Active Substance: QUETIAPINE FUMARATE
     Route: 065
  3. TRIATEC [Concomitant]
     Active Substance: RAMIPRIL
     Route: 065
  4. HEPARIN [Suspect]
     Active Substance: HEPARIN SODIUM
     Indication: VENOUS THROMBOSIS
     Route: 058
     Dates: start: 201407, end: 201407
  5. CRESTOR [Concomitant]
     Active Substance: ROSUVASTATIN CALCIUM
     Route: 065
  6. XARELTO [Suspect]
     Active Substance: RIVAROXABAN
     Indication: VENOUS THROMBOSIS
     Route: 048
     Dates: end: 201407
  7. DAFALGAN [Concomitant]
     Active Substance: ACETAMINOPHEN
     Route: 065
  8. PRADIF [Concomitant]
     Route: 065
  9. BRUFEN [Suspect]
     Active Substance: IBUPROFEN
     Indication: PRODUCT USED FOR UNKNOWN INDICATION
     Route: 048
     Dates: end: 201407
  10. DETRUSITOL [Concomitant]
     Active Substance: TOLTERODINE TARTRATE
     Route: 065

REACTIONS (3)
  - Duodenal ulcer [Recovering/Resolving]
  - Haemorrhagic anaemia [Recovering/Resolving]
  - Upper gastrointestinal haemorrhage [Recovering/Resolving]

NARRATIVE: CASE EVENT DATE: 2014
